FAERS Safety Report 5806672-9 (Version None)
Quarter: 2008Q3

REPORT INFORMATION
  Report Type: 
  Country: None (occurrence: None)
  Receive Date: 20080710
  Receipt Date: 20080707
  Transmission Date: 20090109
  Serious: Yes (Hospitalization)
  Sender: FDA-Public Use
  Company Number: US-MERCK-0807USA01144

PATIENT
  Age: 90 Year
  Sex: Female

DRUGS (5)
  1. FOSAMAX [Suspect]
     Route: 048
     Dates: start: 19980701
  2. AMLODIPINE BESYLATE [Concomitant]
     Route: 065
  3. ATENOLOL [Concomitant]
     Route: 065
  4. LEXAPRO [Concomitant]
     Route: 065
  5. ZETIA [Concomitant]
     Route: 065

REACTIONS (2)
  - FALL [None]
  - HIP FRACTURE [None]
